FAERS Safety Report 11430738 (Version 1)
Quarter: 2015Q3

REPORT INFORMATION
  Report Type: Spontaneous
  Country: US (occurrence: US)
  Receive Date: 20150828
  Receipt Date: 20150828
  Transmission Date: 20151125
  Serious: No
  Sender: FDA-Public Use
  Company Number: PHEH2015US007711

PATIENT
  Age: 50 Year
  Sex: Female

DRUGS (2)
  1. ESTRADIOL SANDOZ [Suspect]
     Active Substance: ESTRADIOL
     Indication: PRODUCT USED FOR UNKNOWN INDICATION
     Route: 062
  2. VIVELLE DOT [Suspect]
     Active Substance: ESTRADIOL
     Indication: PRODUCT USED FOR UNKNOWN INDICATION
     Route: 062

REACTIONS (5)
  - Insomnia [Unknown]
  - Anxiety [Unknown]
  - Depression [Unknown]
  - Hot flush [Unknown]
  - Drug ineffective [Unknown]
